FAERS Safety Report 20681574 (Version 1)
Quarter: 2022Q2

REPORT INFORMATION
  Report Type: Spontaneous
  Country: US (occurrence: US)
  Receive Date: 20220406
  Receipt Date: 20220406
  Transmission Date: 20220721
  Serious: Yes (Other)
  Sender: FDA-Public Use
  Company Number: US-SA-SAC20220405001725

PATIENT
  Age: 25 Year
  Sex: Male

DRUGS (1)
  1. ZANTAC [Suspect]
     Active Substance: RANITIDINE HYDROCHLORIDE
     Indication: Dyspepsia
     Dosage: 150 MG
     Dates: start: 201801, end: 202001

REACTIONS (3)
  - Gastrointestinal carcinoma [Unknown]
  - Lung carcinoma cell type unspecified stage II [Unknown]
  - Testis cancer [Unknown]

NARRATIVE: CASE EVENT DATE: 20200101
